FAERS Safety Report 7657299-8 (Version None)
Quarter: 2011Q3

REPORT INFORMATION
  Report Type: 
  Country: None (occurrence: None)
  Receive Date: 20110804
  Receipt Date: 20110725
  Transmission Date: 20111222
  Serious: Yes (Other)
  Sender: FDA-Public Use
  Company Number: PHHY2011IT67164

PATIENT

DRUGS (2)
  1. AFINITOR [Suspect]
     Indication: RENAL CELL CARCINOMA
     Dosage: 10 MG, DAILY
     Route: 048
     Dates: start: 20100910, end: 20100929
  2. PREDNISONE [Concomitant]
     Dosage: 25 MG, DAILY

REACTIONS (3)
  - SKIN EXFOLIATION [None]
  - MUCOSAL INFLAMMATION [None]
  - OEDEMA [None]
